FAERS Safety Report 9217520 (Version 2)
Quarter: 2013Q2

REPORT INFORMATION
  Report Type: Spontaneous
  Country: JP (occurrence: JP)
  Receive Date: 20130408
  Receipt Date: 20130429
  Transmission Date: 20140414
  Serious: No
  Sender: FDA-Public Use
  Company Number: JP-ROCHE-1211080

PATIENT
  Age: 67 Year
  Sex: Male
  Weight: 45 kg

DRUGS (6)
  1. XELODA [Suspect]
     Indication: COLON CANCER METASTATIC
     Dosage: DOSAGE IS UNCERTAIN.
     Route: 048
     Dates: start: 20130228, end: 20130313
  2. XELODA [Suspect]
     Indication: COLON CANCER METASTATIC
     Dosage: 2 WEEKS ADMINISTRATION FOLLOWED BY 1 WEEK REST
     Route: 048
     Dates: start: 20130328
  3. AVASTIN [Suspect]
     Indication: COLON CANCER METASTATIC
     Route: 041
     Dates: start: 20130228, end: 20130228
  4. AVASTIN [Suspect]
     Route: 041
     Dates: start: 20130328
  5. ELPLAT [Suspect]
     Indication: COLON CANCER METASTATIC
     Dosage: DOSAGE IS UNCERTAIN.
     Route: 041
  6. ELPLAT [Concomitant]

REACTIONS (4)
  - Atrial fibrillation [Recovered/Resolved]
  - Palmar-plantar erythrodysaesthesia syndrome [Recovering/Resolving]
  - Pigmentation disorder [Not Recovered/Not Resolved]
  - Neutrophil count decreased [Recovered/Resolved]
